FAERS Safety Report 5867067-5 (Version None)
Quarter: 2008Q3

REPORT INFORMATION
  Report Type: 
  Country: None (occurrence: None)
  Receive Date: 20080902
  Receipt Date: 20080901
  Transmission Date: 20090109
  Serious: Yes (Life-Threatening)
  Sender: FDA-Public Use
  Company Number: B0534166A

PATIENT
  Age: 36 Year
  Sex: Female

DRUGS (2)
  1. AUGMENTIN '125' [Suspect]
     Indication: TOOTH ABSCESS
     Route: 048
     Dates: start: 20080201
  2. DICLOFENAC [Concomitant]
     Indication: PAIN
     Route: 065
     Dates: start: 20080201

REACTIONS (5)
  - ANAPHYLACTIC REACTION [None]
  - MALAISE [None]
  - OEDEMA [None]
  - RASH PAPULAR [None]
  - URTICARIA [None]
